FAERS Safety Report 9838191 (Version 1)
Quarter: 2013Q4

REPORT INFORMATION
  Report Type: Spontaneous
  Country: US (occurrence: None)
  Receive Date: 20131205
  Receipt Date: 20131205
  Transmission Date: 20140711
  Serious: Yes (Other)
  Sender: FDA-Public Use
  Company Number: 163-POMAL-13071639

PATIENT
  Age: 65 Year
  Sex: Female
  Weight: 46.4 kg

DRUGS (11)
  1. POMALYST (POMALIDOMIDE) (4 MILLIGRAM, CAPSULES) [Suspect]
     Indication: PLASMA CELL MYELOMA
     Dosage: 4/2013 - TEMPORARILY INTERRUPTS?4 MG, 21 IN 21 D, PO
     Route: 048
     Dates: start: 201304
  2. SYNTHROID (LEVOTHYROXINE SODIUM) [Concomitant]
  3. GABAPENTN (GABAPENTIN) [Concomitant]
  4. PANTOPRAZOLE (PANTOPRAZOLE) [Concomitant]
  5. LYRICA (PREGABALIN) [Concomitant]
  6. LOVENOX (HEPARIN-FRACTION, SODIUM SALT) [Concomitant]
  7. POTASSIUM CHLORIDE (POTASSIUM CHLORIDE) [Concomitant]
  8. ACYCLOVIR (ACICLOVIR) (ACICLOVIR) [Concomitant]
  9. ALPRAZOLAM (ALPRAZOLAM) [Concomitant]
  10. DEXAMETHASONE (DEXAMETHASONE) [Concomitant]
  11. HYDROCHLOROTHIAZIDE (HYDROCHLOROTHIAZIDE) [Concomitant]

REACTIONS (4)
  - Peripheral coldness [None]
  - Hypoaesthesia [None]
  - Pain in extremity [None]
  - Oedema peripheral [None]
